FAERS Safety Report 4303496-9 (Version None)
Quarter: 2004Q1

REPORT INFORMATION
  Report Type: 
  Country: None (occurrence: None)
  Receive Date: 20040224
  Receipt Date: 20040224
  Transmission Date: 20041129
  Serious: Yes (Hospitalization)
  Sender: FDA-Public Use
  Company Number: None

PATIENT
  Age: 84 Year
  Sex: Female
  Weight: 75.2971 kg

DRUGS (2)
  1. CEFTAZIDIME [Suspect]
     Indication: URINARY TRACT INFECTION
     Dosage: 500 MG Q 8 H
     Dates: start: 20040216, end: 20040219
  2. AMPICILLIN [Concomitant]

REACTIONS (3)
  - DYSPNOEA [None]
  - INJECTION SITE RASH [None]
  - INJECTION SITE SWELLING [None]
